FAERS Safety Report 6970159-0 (Version None)
Quarter: 2010Q3

REPORT INFORMATION
  Report Type: 
  Country: None (occurrence: None)
  Receive Date: 20100823
  Receipt Date: 20100617
  Transmission Date: 20110219
  Serious: No
  Sender: FDA-Public Use
  Company Number: 014546

PATIENT
  Sex: Female

DRUGS (2)
  1. CIMZIA [Suspect]
     Dosage: SUBCUTANEOUS, SUBCUTANEOUS
     Route: 058
     Dates: end: 20100101
  2. CIMZIA [Suspect]
     Dosage: SUBCUTANEOUS, SUBCUTANEOUS
     Route: 058
     Dates: start: 20100524

REACTIONS (1)
  - INFECTIOUS MONONUCLEOSIS [None]
